FAERS Safety Report 6165641-2 (Version None)
Quarter: 2009Q2

REPORT INFORMATION
  Report Type: 
  Country: None (occurrence: None)
  Receive Date: 20090423
  Receipt Date: 20090413
  Transmission Date: 20091009
  Serious: Yes (Hospitalization)
  Sender: FDA-Public Use
  Company Number: US-WATSON-2009-02540

PATIENT
  Sex: Female
  Weight: 58.05 kg

DRUGS (2)
  1. ALLOPURINOL (WATSON LABORATORIES) [Suspect]
     Indication: GOUT
  2. TREANDA [Suspect]
     Indication: CHRONIC LYMPHOCYTIC LEUKAEMIA
     Dosage: 100 MG/M2, Q 4 WEEKS
     Route: 042
     Dates: start: 20090209, end: 20090210

REACTIONS (4)
  - ASTHENIA [None]
  - RASH MACULAR [None]
  - STOMATITIS [None]
  - WEIGHT DECREASED [None]
